FAERS Safety Report 25735000 (Version 1)
Quarter: 2025Q3

REPORT INFORMATION
  Report Type: Spontaneous
  Country: CA (occurrence: None)
  Receive Date: 20250827
  Receipt Date: 20250827
  Transmission Date: 20251021
  Serious: Yes (Other)
  Sender: FDA-CTU
  Company Number: None

PATIENT
  Age: 38 Year
  Sex: Female
  Weight: 76.5 kg

DRUGS (1)
  1. DAXXIFY [Suspect]
     Active Substance: DAXIBOTULINUMTOXIN A-LANM
     Dates: start: 20250728, end: 20250731

REACTIONS (9)
  - Cold flash [None]
  - Tremor [None]
  - Migraine [None]
  - Seizure [None]
  - Asthenopia [None]
  - Facial discomfort [None]
  - Visual impairment [None]
  - Ocular discomfort [None]
  - Lymphadenopathy [None]

NARRATIVE: CASE EVENT DATE: 20250728
